FAERS Safety Report 16798562 (Version 2)
Quarter: 2019Q3

REPORT INFORMATION
  Report Type: Spontaneous
  Country: GB (occurrence: GB)
  Receive Date: 20190912
  Receipt Date: 20190928
  Transmission Date: 20191005
  Serious: No
  Sender: FDA-Public Use
  Company Number: GB-ABBVIE-19K-167-2920475-00

PATIENT
  Age: 88 Year
  Sex: Female

DRUGS (2)
  1. VENETOCLAX. [Suspect]
     Active Substance: VENETOCLAX
     Indication: CHRONIC LYMPHOCYTIC LEUKAEMIA STAGE 0
     Route: 048
  2. VENETOCLAX. [Suspect]
     Active Substance: VENETOCLAX
     Indication: ABDOMINAL MASS

REACTIONS (1)
  - Product use in unapproved indication [Unknown]
